FAERS Safety Report 4948101-3 (Version None)
Quarter: 2006Q1

REPORT INFORMATION
  Report Type: 
  Country: None (occurrence: None)
  Receive Date: 20060320
  Receipt Date: 20051213
  Transmission Date: 20060701
  Serious: Yes (Other)
  Sender: FDA-Public Use
  Company Number: US-MERCK-0512USA02162

PATIENT
  Sex: Male

DRUGS (2)
  1. VIOXX [Suspect]
     Route: 048
     Dates: start: 20000306
  2. VIOXX [Suspect]
     Route: 048
     Dates: start: 20001218

REACTIONS (2)
  - INJURY [None]
  - MYOCARDIAL INFARCTION [None]
